FAERS Safety Report 7325640-1 (Version None)
Quarter: 2011Q1

REPORT INFORMATION
  Report Type: 
  Country: None (occurrence: None)
  Receive Date: 20110302
  Receipt Date: 20110228
  Transmission Date: 20110831
  Serious: Yes (Death)
  Sender: FDA-Public Use
  Company Number: US-PFIZER INC-2011044548

PATIENT
  Sex: Male

DRUGS (1)
  1. NORVASC [Suspect]
     Dosage: 10 MG, UNK
     Dates: end: 20100727

REACTIONS (1)
  - DEATH [None]
